FAERS Safety Report 6063435-X (Version None)
Quarter: 2009Q1

REPORT INFORMATION
  Report Type: 
  Country: None (occurrence: None)
  Receive Date: 20090203
  Receipt Date: 20090128
  Transmission Date: 20090719
  Serious: No
  Sender: FDA-Public Use
  Company Number: US-B.I. PHARMACEUTICALS,INC./RIDGEFIELD-2008-BP-19006BP

PATIENT
  Sex: Male
  Weight: 79 kg

DRUGS (3)
  1. FLOMAX [Suspect]
     Indication: PROSTATOMEGALY
     Dosage: .4MG
     Dates: start: 20020101
  2. FLOMAX [Suspect]
     Dosage: .4MG
     Dates: start: 20080101
  3. CELEBREX [Concomitant]
     Dates: start: 20010327

REACTIONS (1)
  - DRUG INEFFECTIVE [None]
